FAERS Safety Report 15645444 (Version 1)
Quarter: 2018Q4

REPORT INFORMATION
  Report Type: Spontaneous
  Country: US (occurrence: US)
  Receive Date: 20181121
  Receipt Date: 20181121
  Transmission Date: 20190205
  Serious: No
  Sender: FDA-Public Use
  Company Number: US-LEADING PHARMA, LLC-2059176

PATIENT
  Sex: Female

DRUGS (1)
  1. LORAZEPAM. [Suspect]
     Active Substance: LORAZEPAM
     Route: 048

REACTIONS (6)
  - Insomnia [Unknown]
  - Anxiety [Unknown]
  - Chest discomfort [Unknown]
  - Depression [Unknown]
  - Palpitations [Unknown]
  - Suicidal ideation [Unknown]
